FAERS Safety Report 6186158-5 (Version None)
Quarter: 2009Q2

REPORT INFORMATION
  Report Type: 
  Country: None (occurrence: None)
  Receive Date: 20090507
  Receipt Date: 20090507
  Transmission Date: 20091009
  Serious: Yes (Other)
  Sender: FDA-Public Use
  Company Number: None

PATIENT
  Age: 43 Year
  Sex: Male
  Weight: 75.7507 kg

DRUGS (2)
  1. LEVAQUIN [Suspect]
     Indication: GINGIVAL INFECTION
     Dosage: 500MG 1X DAY PO
     Route: 048
     Dates: start: 20090505, end: 20090505
  2. LEVAQUIN [Suspect]
     Indication: SINUSITIS
     Dosage: 500MG 1X DAY PO
     Route: 048
     Dates: start: 20090505, end: 20090505

REACTIONS (3)
  - MASS [None]
  - PHARYNGEAL OEDEMA [None]
  - RASH [None]
